FAERS Safety Report 5333153-1 (Version None)
Quarter: 2007Q2

REPORT INFORMATION
  Report Type: 
  Country: None (occurrence: None)
  Receive Date: 20070524
  Receipt Date: 20070515
  Transmission Date: 20071010
  Serious: Yes (Hospitalization)
  Sender: FDA-Public Use
  Company Number: IT-BRISTOL-MYERS SQUIBB COMPANY-13788559

PATIENT
  Sex: Female

DRUGS (1)
  1. GLYBURIDE AND METFORMIN HCL [Suspect]
     Route: 048

REACTIONS (1)
  - GENERALISED ERYTHEMA [None]
